FAERS Safety Report 6681853-3 (Version None)
Quarter: 2010Q2

REPORT INFORMATION
  Report Type: 
  Country: None (occurrence: None)
  Receive Date: 20100414
  Receipt Date: 20100406
  Transmission Date: 20101027
  Serious: Yes (Hospitalization)
  Sender: FDA-Public Use
  Company Number: US-ABBOTT-10P-163-0636592-00

PATIENT
  Sex: Female
  Weight: 54.48 kg

DRUGS (14)
  1. HUMIRA [Suspect]
     Indication: RHEUMATOID ARTHRITIS
     Dates: start: 20080101
  2. METHOTREXATE [Concomitant]
     Indication: RHEUMATOID ARTHRITIS
  3. IMURAN [Concomitant]
     Indication: RHEUMATOID ARTHRITIS
  4. MOBIC [Concomitant]
     Indication: RHEUMATOID ARTHRITIS
  5. TOPROL-XL [Concomitant]
     Indication: HYPERTENSION
  6. ZYRTEC [Concomitant]
     Indication: HYPERSENSITIVITY
  7. ACIPHEX [Concomitant]
     Indication: ULCER
  8. FLEXERIL [Concomitant]
     Indication: RHEUMATOID ARTHRITIS
  9. LORTAB [Concomitant]
     Indication: PAIN
  10. OXYBUTYN [Concomitant]
     Indication: URINARY INCONTINENCE
  11. FOLIC ACID [Concomitant]
     Indication: ROUTINE HEALTH MAINTENANCE
  12. MULTIPLE VITAMINS [Concomitant]
     Indication: ROUTINE HEALTH MAINTENANCE
  13. SLO FEN [Concomitant]
     Indication: ANAEMIA
  14. BENADRYL [Concomitant]
     Indication: HYPERSENSITIVITY

REACTIONS (6)
  - ABDOMINAL PAIN [None]
  - DIARRHOEA [None]
  - HAEMOGLOBIN DECREASED [None]
  - INTESTINAL OBSTRUCTION [None]
  - PNEUMONIA [None]
  - WEIGHT DECREASED [None]
